FAERS Safety Report 6382483-3 (Version None)
Quarter: 2009Q3

REPORT INFORMATION
  Report Type: 
  Country: None (occurrence: None)
  Receive Date: 20090924
  Receipt Date: 20080828
  Transmission Date: 20100115
  Serious: Yes (Hospitalization)
  Sender: FDA-Public Use
  Company Number: WAES 0808USA05350

PATIENT
  Age: 70 Year
  Sex: Female

DRUGS (1)
  1. VYTORIN [Suspect]
     Indication: BLOOD CHOLESTEROL INCREASED
     Dosage: 10-40 MG/DAILY/PO
     Route: 048
     Dates: start: 20060101, end: 20080821

REACTIONS (8)
  - ABDOMINAL DISTENSION [None]
  - ABDOMINAL PAIN [None]
  - DIARRHOEA [None]
  - HEPATIC CYST [None]
  - NAUSEA [None]
  - RENAL CYST [None]
  - TENDERNESS [None]
  - VOMITING [None]
